FAERS Safety Report 7178776-2 (Version None)
Quarter: 2010Q4

REPORT INFORMATION
  Report Type: 
  Country: None (occurrence: None)
  Receive Date: 20101221
  Receipt Date: 20101210
  Transmission Date: 20110411
  Serious: Yes (Other)
  Sender: FDA-Public Use
  Company Number: GB-JNJFOC-20101204532

PATIENT
  Age: 32 Year
  Sex: Male

DRUGS (9)
  1. DARUNAVIR ETHANOLATE [Suspect]
     Indication: HIV INFECTION
     Route: 048
  2. LAMIVUDINE [Suspect]
     Indication: HIV INFECTION
     Route: 065
  3. RITONAVIR [Suspect]
     Indication: HIV INFECTION
     Route: 065
  4. TENOFOVIR DISOPROXIL FUMARATE [Suspect]
     Indication: HIV INFECTION
     Route: 065
  5. CLINDAMYCIN [Concomitant]
     Route: 065
  6. COTRIM [Concomitant]
     Route: 065
  7. DAPSONE [Concomitant]
     Route: 065
  8. PRIMAQUINE [Concomitant]
     Route: 065
  9. STEROIDS NOS [Concomitant]
     Route: 065

REACTIONS (9)
  - ABSCESS [None]
  - DYSKINESIA [None]
  - ERYTHEMA [None]
  - IMMUNE RECONSTITUTION SYNDROME [None]
  - MYCOBACTERIUM AVIUM COMPLEX INFECTION [None]
  - NECROSIS [None]
  - PAROTID GLAND ENLARGEMENT [None]
  - PAROTITIS [None]
  - SWELLING FACE [None]
